FAERS Safety Report 4530800-9 (Version None)
Quarter: 2004Q4

REPORT INFORMATION
  Report Type: 
  Country: None (occurrence: None)
  Receive Date: 20041216
  Receipt Date: 20041201
  Transmission Date: 20050328
  Serious: Yes (Disabling)
  Sender: FDA-Public Use
  Company Number: GBS041216068

PATIENT
  Age: 20 Year
  Sex: Female

DRUGS (3)
  1. OLANZAPINE [Suspect]
     Indication: PSYCHOTIC DISORDER
     Dosage: 5 MG
     Dates: end: 20041105
  2. TEGRETOL (CARBAMAZEPINE RIVOPHARM) [Concomitant]
  3. CARBIMAZOLE [Concomitant]

REACTIONS (5)
  - DRY MOUTH [None]
  - INCONTINENCE [None]
  - MUSCLE SPASMS [None]
  - MUSCULOSKELETAL STIFFNESS [None]
  - SOMNOLENCE [None]
